FAERS Safety Report 18116014 (Version 2)
Quarter: 2020Q3

REPORT INFORMATION
  Report Type: Spontaneous
  Country: CH (occurrence: CH)
  Receive Date: 20200805
  Receipt Date: 20200817
  Transmission Date: 20201103
  Serious: Yes (Other)
  Sender: FDA-Public Use
  Company Number: CH-SHIRE-CH202024883

PATIENT

DRUGS (5)
  1. RESOLOR [Suspect]
     Active Substance: PRUCALOPRIDE SUCCINATE
     Indication: CONGENITAL MEGACOLON
     Dosage: UNK, UNKNOWN
     Route: 065
  2. RESOLOR [Suspect]
     Active Substance: PRUCALOPRIDE SUCCINATE
     Indication: CONSTIPATION
  3. COLPHOS [Concomitant]
     Indication: PRODUCT USED FOR UNKNOWN INDICATION
  4. OPTIFIBRE [Concomitant]
     Indication: PRODUCT USED FOR UNKNOWN INDICATION
  5. LAXOBERON [Concomitant]
     Active Substance: SODIUM PICOSULFATE
     Indication: PRODUCT USED FOR UNKNOWN INDICATION

REACTIONS (4)
  - Off label use [Unknown]
  - Encopresis [Unknown]
  - Constipation [Unknown]
  - Megacolon [Unknown]
